FAERS Safety Report 4393799-4 (Version None)
Quarter: 2004Q3

REPORT INFORMATION
  Report Type: 
  Country: None (occurrence: None)
  Receive Date: 20040706
  Receipt Date: 20040622
  Transmission Date: 20050211
  Serious: No
  Sender: FDA-Public Use
  Company Number: 02100-JPN-04-0167

PATIENT
  Sex: Female

DRUGS (4)
  1. CILOSTAZOL [Suspect]
     Dosage: ORAL
     Route: 048
  2. FUROSEMIDE [Concomitant]
  3. SPIRONOLACTONE [Concomitant]
  4. METILDIGOXIN [Concomitant]

REACTIONS (1)
  - HAEMORRHAGIC CEREBRAL INFARCTION [None]
